FAERS Safety Report 14684363 (Version 4)
Quarter: 2018Q4

REPORT INFORMATION
  Report Type: Report from Study
  Country: None (occurrence: IT)
  Receive Date: 20180327
  Receipt Date: 20181203
  Transmission Date: 20190204
  Serious: Yes (Hospitalization)
  Sender: FDA-Public Use
  Company Number: IT-ABBVIE-18P-083-2295852-00

PATIENT
  Age: 74 Year
  Sex: Male
  Weight: 71 kg

DRUGS (3)
  1. AZARGA [Concomitant]
     Active Substance: BRINZOLAMIDE\TIMOLOL MALEATE
     Indication: GLAUCOMA
     Route: 048
     Dates: start: 2017
  2. VISIMAST [Concomitant]
     Indication: GLAUCOMA
     Route: 048
     Dates: start: 2017
  3. GLECAPREVIR/PIBRENTASVIR [Suspect]
     Active Substance: GLECAPREVIR\PIBRENTASVIR
     Indication: HEPATITIS C
     Dosage: 300/120 MG
     Route: 048
     Dates: start: 20180302, end: 20180427

REACTIONS (2)
  - Factor VIII deficiency [Not Recovered/Not Resolved]
  - Chest wall haematoma [Not Recovered/Not Resolved]

NARRATIVE: CASE EVENT DATE: 20180314
